FAERS Safety Report 17372753 (Version 1)
Quarter: 2020Q1

REPORT INFORMATION
  Report Type: Spontaneous
  Country: FR (occurrence: FR)
  Receive Date: 20200205
  Receipt Date: 20200205
  Transmission Date: 20200409
  Serious: Yes (Death, Hospitalization, Other)
  Sender: FDA-Public Use
  Company Number: FR-MYLANLABS-2020M1012956

PATIENT
  Sex: Male
  Weight: .4 kg

DRUGS (9)
  1. PANTOPRAZOLE [Suspect]
     Active Substance: PANTOPRAZOLE
     Indication: PRODUCT USED FOR UNKNOWN INDICATION
     Dosage: MATERNAL DOSE 20 MG QD
     Route: 064
     Dates: start: 20161121
  2. SPECIAFOLDINE [Suspect]
     Active Substance: FOLIC ACID
     Indication: PRODUCT USED FOR UNKNOWN INDICATION
     Dosage: MATERNAL DOSE 1 DF, QD
     Route: 064
     Dates: start: 20161121
  3. KARDEGIC [Suspect]
     Active Substance: ASPIRIN DL-LYSINE
     Indication: PRODUCT USED FOR UNKNOWN INDICATION
     Dosage: 1 DOSAGE FORM, QD
     Route: 064
     Dates: start: 20161126
  4. ADRENALINE                         /00003901/ [Concomitant]
     Active Substance: EPINEPHRINE
     Indication: PRODUCT USED FOR UNKNOWN INDICATION
     Dosage: UNK
     Route: 064
  5. CORTANCYL [Suspect]
     Active Substance: PREDNISONE
     Indication: PRODUCT USED FOR UNKNOWN INDICATION
     Dosage: MATERNAL DOSE: 80 MG, QD
     Route: 064
     Dates: start: 201701
  6. MABTHERA [Suspect]
     Active Substance: RITUXIMAB
     Indication: PRODUCT USED FOR UNKNOWN INDICATION
     Dosage: MATERNAL DOSE 2DF TOTAL
     Route: 064
     Dates: start: 20161207, end: 20161207
  7. ORACILLINE                         /00001801/ [Suspect]
     Active Substance: PENICILLIN V
     Indication: PRODUCT USED FOR UNKNOWN INDICATION
     Dosage: MATERNAL DOSE 2 DF, QD
     Route: 064
     Dates: start: 20161220
  8. CORTANCYL [Suspect]
     Active Substance: PREDNISONE
     Dosage: MATERNAL DOSE: 20 MG, QD
     Route: 064
  9. CORTANCYL [Suspect]
     Active Substance: PREDNISONE
     Dosage: MATERNAL DOSE 80 MG, QD
     Route: 064
     Dates: start: 20161118

REACTIONS (5)
  - Low birth weight baby [Unknown]
  - Premature baby [Fatal]
  - Multiple organ dysfunction syndrome [Fatal]
  - Foetal growth restriction [Fatal]
  - Foetal exposure during pregnancy [Recovered/Resolved]

NARRATIVE: CASE EVENT DATE: 20161220
